FAERS Safety Report 13822301 (Version 1)
Quarter: 2017Q3

REPORT INFORMATION
  Report Type: Spontaneous
  Country: US (occurrence: US)
  Receive Date: 20170801
  Receipt Date: 20170801
  Transmission Date: 20171127
  Serious: No
  Sender: FDA-Public Use
  Company Number: US-IMPAX LABORATORIES, INC-2017-IPXL-00335

PATIENT
  Age: 64 Year
  Sex: Male
  Weight: 82 kg

DRUGS (6)
  1. FUROSEMIDE. [Concomitant]
     Active Substance: FUROSEMIDE
     Indication: CARDIAC DISORDER
     Dosage: UNK
     Route: 065
  2. SIMVASTATIN. [Concomitant]
     Active Substance: SIMVASTATIN
     Indication: CARDIAC DISORDER
     Dosage: UNK
     Route: 065
  3. SPIRONOLACTONE. [Concomitant]
     Active Substance: SPIRONOLACTONE
     Indication: CARDIAC DISORDER
     Dosage: UNK
     Route: 065
  4. CARVEDILOL. [Concomitant]
     Active Substance: CARVEDILOL
     Indication: CARDIAC DISORDER
     Dosage: UNK
     Route: 065
  5. KLONOPIN [Concomitant]
     Active Substance: CLONAZEPAM
     Indication: ANXIETY
     Dosage: UNK
     Route: 065
  6. ALBENZA [Suspect]
     Active Substance: ALBENDAZOLE
     Indication: HOOKWORM INFECTION
     Dosage: 200 MG, 2 TABLETS ON DAY 1 AND ANOTHER 2 TABLETS 2 WEEKS LATER
     Route: 048
     Dates: start: 20170121

REACTIONS (5)
  - Product use in unapproved indication [Unknown]
  - Paraesthesia [Recovered/Resolved]
  - Asthenia [Recovering/Resolving]
  - Wound secretion [Recovering/Resolving]
  - Fatigue [Recovering/Resolving]
